FAERS Safety Report 6738276-8 (Version None)
Quarter: 2010Q2

REPORT INFORMATION
  Report Type: 
  Country: None (occurrence: None)
  Receive Date: 20100524
  Receipt Date: 20100517
  Transmission Date: 20101027
  Serious: Yes (Other)
  Sender: FDA-Public Use
  Company Number: A0860707A

PATIENT
  Age: 56 Year
  Sex: Female

DRUGS (1)
  1. VALTREX [Suspect]
     Indication: GENITAL HERPES
     Dosage: 500MG PER DAY
     Route: 048
     Dates: start: 20000101

REACTIONS (4)
  - APLASTIC ANAEMIA [None]
  - DIZZINESS [None]
  - GASTROINTESTINAL DISORDER [None]
  - PANCYTOPENIA [None]
